FAERS Safety Report 9332597 (Version 4)
Quarter: 2013Q4

REPORT INFORMATION
  Report Type: Report from Study
  Country: JP (occurrence: JP)
  Receive Date: 20130606
  Receipt Date: 20131021
  Transmission Date: 20140711
  Serious: Yes (Hospitalization)
  Sender: FDA-Public Use
  Company Number: JP-JNJFOC-20130600036

PATIENT
  Age: 65 Year
  Sex: Male
  Weight: 68 kg

DRUGS (7)
  1. GOLIMUMAB [Suspect]
     Indication: COLITIS ULCERATIVE
     Route: 058
     Dates: start: 20130508
  2. GOLIMUMAB [Suspect]
     Indication: COLITIS ULCERATIVE
     Route: 058
     Dates: start: 20130424
  3. MESALAZINE [Concomitant]
     Indication: COLITIS ULCERATIVE
     Route: 048
     Dates: end: 20130522
  4. MIYA BM [Concomitant]
     Indication: COLITIS ULCERATIVE
     Route: 048
  5. NEXIUM [Concomitant]
  6. SOLACET D [Concomitant]
     Route: 042
     Dates: start: 20130522, end: 20130522
  7. ASACOL [Concomitant]
     Indication: COLITIS ULCERATIVE
     Route: 048
     Dates: start: 20130522, end: 20130529

REACTIONS (1)
  - Cytomegalovirus colitis [Recovered/Resolved]
